FAERS Safety Report 8532295-7 (Version None)
Quarter: 2012Q3

REPORT INFORMATION
  Report Type: 
  Country: None (occurrence: None)
  Receive Date: 20120724
  Receipt Date: 20120712
  Transmission Date: 20120928
  Serious: Yes (Death, Other)
  Sender: FDA-Public Use
  Company Number: US-PAR PHARMACEUTICAL, INC-2012SCPR004505

PATIENT

DRUGS (2)
  1. HYDROMORPHONE HCL [Interacting]
     Indication: PAIN
     Dosage: 2 MG, EVERY 2 HOURS WHEN REQUIRED
     Route: 042
  2. ZOLPIDEM TARTRATE [Suspect]
     Indication: PRODUCT USED FOR UNKNOWN INDICATION
     Dosage: 10 MG, SINGLE
     Route: 048

REACTIONS (3)
  - DEATH [None]
  - DRUG INTERACTION [None]
  - RESPIRATORY DEPRESSION [None]
